FAERS Safety Report 23885478 (Version 1)
Quarter: 2024Q2

REPORT INFORMATION
  Report Type: Spontaneous
  Country: US (occurrence: None)
  Receive Date: 20240521
  Receipt Date: 20240521
  Transmission Date: 20240716
  Serious: Yes (Hospitalization)
  Sender: FDA-Public Use
  Company Number: None

PATIENT
  Age: 52 Year
  Sex: Male
  Weight: 125.65 kg

DRUGS (2)
  1. CAPECITABINE [Suspect]
     Active Substance: CAPECITABINE
     Indication: Anal cancer
     Dosage: FREQUENCY : TWICE A DAY;?
     Route: 048
     Dates: start: 20240108, end: 20240319
  2. MUTAMYCIN [Suspect]
     Active Substance: MITOMYCIN
     Route: 042
     Dates: start: 20240109, end: 20240205

REACTIONS (3)
  - Mental disorder [None]
  - Suicidal ideation [None]
  - Musculoskeletal pain [None]

NARRATIVE: CASE EVENT DATE: 20240520
